FAERS Safety Report 19063410 (Version 2)
Quarter: 2025Q2

REPORT INFORMATION
  Report Type: Spontaneous
  Country: CA (occurrence: CA)
  Receive Date: 20210326
  Receipt Date: 20250609
  Transmission Date: 20250716
  Serious: Yes (Other)
  Sender: MERCK SHARP & DOHME LLC
  Company Number: None

PATIENT
  Age: 68 Year
  Sex: Female

DRUGS (1)
  1. POSACONAZOLE [Suspect]
     Active Substance: POSACONAZOLE
     Indication: Fungal infection
     Route: 048
     Dates: start: 20200916

REACTIONS (2)
  - Vulvovaginal dryness [Recovered/Resolved]
  - Vulvovaginal pain [Recovered/Resolved]

NARRATIVE: CASE EVENT DATE: 20200916
